FAERS Safety Report 8001520-3 (Version None)
Quarter: 2011Q4

REPORT INFORMATION
  Report Type: 
  Country: None (occurrence: None)
  Receive Date: 20111222
  Receipt Date: 20111215
  Transmission Date: 20120403
  Serious: No
  Sender: FDA-Public Use
  Company Number: DE-ROCHE-1020453

PATIENT
  Sex: Female
  Weight: 27 kg

DRUGS (2)
  1. XOLAIR [Suspect]
     Indication: PRODUCT USED FOR UNKNOWN INDICATION
     Route: 058
     Dates: start: 20110711
  2. FLUTICASONE PROPIONATE/SALMETEROL [Concomitant]

REACTIONS (1)
  - SCARLET FEVER [None]
